FAERS Safety Report 19447740 (Version 1)
Quarter: 2021Q2

REPORT INFORMATION
  Report Type: Spontaneous
  Country: US (occurrence: US)
  Receive Date: 20210621
  Receipt Date: 20210621
  Transmission Date: 20210717
  Serious: Yes (Hospitalization)
  Sender: FDA-Public Use
  Company Number: None

PATIENT
  Sex: Male

DRUGS (15)
  1. ROSUVASTATIN. [Concomitant]
     Active Substance: ROSUVASTATIN
  2. XARELTO [Concomitant]
     Active Substance: RIVAROXABAN
  3. AMOX/K CLAV [Concomitant]
     Active Substance: AMOXICILLIN\CLAVULANATE POTASSIUM
  4. FLUOROURACIL. [Concomitant]
     Active Substance: FLUOROURACIL
  5. HYDROCORT (HYDROCORTISONE) [Concomitant]
     Active Substance: HYDROCORTISONE
  6. MULTIVITAMIN [Concomitant]
     Active Substance: VITAMINS
  7. PREDNISONE. [Concomitant]
     Active Substance: PREDNISONE
  8. SANDIMMUNE [Concomitant]
     Active Substance: CYCLOSPORINE
  9. AMLODIPINE [Concomitant]
     Active Substance: AMLODIPINE BESYLATE
  10. CEPHALEXIN. [Concomitant]
     Active Substance: CEPHALEXIN
  11. FUROSEMIDE. [Concomitant]
     Active Substance: FUROSEMIDE
  12. ESBRIET [Suspect]
     Active Substance: PIRFENIDONE
     Indication: IDIOPATHIC PULMONARY FIBROSIS
     Route: 048
     Dates: start: 20150528
  13. DICLOFENAC GEL [Concomitant]
     Active Substance: DICLOFENAC
  14. LOSARTAN POT [Concomitant]
     Active Substance: LOSARTAN POTASSIUM
  15. FOSFOMYCIN [Concomitant]
     Active Substance: FOSFOMYCIN

REACTIONS (2)
  - Dyspnoea [None]
  - Therapy interrupted [None]
